FAERS Safety Report 9376276 (Version 1)
Quarter: 2013Q3

REPORT INFORMATION
  Report Type: Spontaneous
  Country: CN (occurrence: CN)
  Receive Date: 20130701
  Receipt Date: 20130701
  Transmission Date: 20140515
  Serious: Yes (Hospitalization)
  Sender: FDA-Public Use
  Company Number: CN-JNJFOC-20130616402

PATIENT
  Age: 39 Year
  Sex: Female

DRUGS (1)
  1. RISPERDAL [Suspect]
     Indication: SCHIZOPHRENIA
     Dosage: EVERY 12 HOURS
     Route: 048
     Dates: start: 20120101, end: 20120411

REACTIONS (1)
  - Liver function test abnormal [Recovering/Resolving]
